FAERS Safety Report 6133731-6 (Version None)
Quarter: 2009Q1

REPORT INFORMATION
  Report Type: 
  Country: None (occurrence: None)
  Receive Date: 20090326
  Receipt Date: 20090319
  Transmission Date: 20090719
  Serious: Yes (Other)
  Sender: FDA-Public Use
  Company Number: B0566778A

PATIENT
  Age: 44 Year
  Sex: Female

DRUGS (4)
  1. LAMICTAL [Suspect]
     Indication: BIPOLAR DISORDER
     Dosage: 200MG PER DAY
     Route: 065
     Dates: start: 20060101
  2. LITHIUM CARBONATE [Concomitant]
     Dosage: 6MMOL THREE TIMES PER DAY
  3. CITALOPRAM HYDROBROMIDE [Concomitant]
     Dosage: 10MG PER DAY
  4. SEROQUEL [Concomitant]
     Dosage: 100MG PER DAY

REACTIONS (2)
  - MULTIPLE SCLEROSIS [None]
  - OPTIC NEURITIS [None]
